FAERS Safety Report 8455872-0 (Version None)
Quarter: 2012Q2

REPORT INFORMATION
  Report Type: 
  Country: None (occurrence: None)
  Receive Date: 20120323
  Receipt Date: 20111017
  Transmission Date: 20120825
  Serious: Yes (Other)
  Sender: FDA-Public Use
  Company Number: 163-21880-11092338

PATIENT
  Age: 65 Year
  Sex: Female
  Weight: 68.9467 kg

DRUGS (13)
  1. REVLIMID [Suspect]
     Indication: MULTIPLE MYELOMA
     Dosage: 10 MG, 1 IN 1 D, PO : 5-20 MG, 21D / 28D, PO
     Route: 048
     Dates: start: 20080418
  2. REVLIMID [Suspect]
     Indication: MULTIPLE MYELOMA
     Dosage: 10 MG, 1 IN 1 D, PO : 5-20 MG, 21D / 28D, PO
     Route: 048
     Dates: start: 20101105, end: 20110601
  3. POTASSIUM CHLORIDE [Concomitant]
  4. HYDROXYZINE HYDROCHLORIDE [Concomitant]
  5. DEXAMETHASONE [Concomitant]
  6. ACYCLOVIR [Concomitant]
  7. UREA [Concomitant]
  8. NASONEX [Concomitant]
  9. PROMETHAZINE HCL [Concomitant]
  10. OMEPRAZOLE [Concomitant]
  11. DECADRON [Concomitant]
  12. SYNTHROID [Concomitant]
  13. DOXYCYCLINE HYCLATE [Concomitant]

REACTIONS (1)
  - PANCYTOPENIA [None]
